FAERS Safety Report 7265647-6 (Version None)
Quarter: 2011Q1

REPORT INFORMATION
  Report Type: 
  Country: None (occurrence: None)
  Receive Date: 20110120
  Receipt Date: 20110107
  Transmission Date: 20110831
  Serious: Yes (Death)
  Sender: FDA-Public Use
  Company Number: 2011S1000006

PATIENT
  Sex: Male

DRUGS (2)
  1. INOVENT (DELIVERY SYSTEM) [Suspect]
  2. INOMAX [Suspect]
     Dosage: 20 PPM;CONT;INH
     Route: 055
     Dates: start: 20110107, end: 20110107

REACTIONS (1)
  - DEVICE FAILURE [None]
